FAERS Safety Report 7351247-6 (Version None)
Quarter: 2011Q1

REPORT INFORMATION
  Report Type: 
  Country: None (occurrence: None)
  Receive Date: 20110314
  Receipt Date: 20110218
  Transmission Date: 20110831
  Serious: Yes (Hospitalization)
  Sender: FDA-Public Use
  Company Number: JP-PFIZER INC-2011048216

PATIENT
  Sex: Male

DRUGS (1)
  1. SEIBULE [Suspect]
     Indication: HYPERGLYCAEMIA
     Dosage: 150 MG, UNK, DAILY
     Route: 048

REACTIONS (1)
  - ILEUS [None]
